FAERS Safety Report 17535942 (Version 1)
Quarter: 2020Q1

REPORT INFORMATION
  Report Type: Spontaneous
  Country: JP (occurrence: JP)
  Receive Date: 20200313
  Receipt Date: 20200313
  Transmission Date: 20200409
  Serious: Yes (Life-Threatening, Hospitalization, Other)
  Sender: FDA-Public Use
  Company Number: JP-ASTELLAS-2020JP004808

PATIENT
  Age: 36 Year
  Sex: Male

DRUGS (3)
  1. PROGRAF [Suspect]
     Active Substance: TACROLIMUS
     Dosage: 1 MG/DAY, UNKNOWN FREQ.
     Route: 050
     Dates: start: 20200306
  2. PROGRAF [Suspect]
     Active Substance: TACROLIMUS
     Indication: RENAL TRANSPLANT
     Route: 050
  3. MEDROLGIN [Concomitant]
     Indication: PRODUCT USED FOR UNKNOWN INDICATION
     Dosage: UNK UNK, UNKNOWN FREQ.
     Route: 065

REACTIONS (5)
  - Product use issue [Unknown]
  - Nephropathy [Unknown]
  - Myocardial infarction [Unknown]
  - Pneumonia [Unknown]
  - Wrong technique in product usage process [Unknown]
